FAERS Safety Report 6531530-4 (Version None)
Quarter: 2010Q1

REPORT INFORMATION
  Report Type: 
  Country: None (occurrence: None)
  Receive Date: 20100107
  Receipt Date: 20100107
  Transmission Date: 20100710
  Serious: Yes (Hospitalization)
  Sender: FDA-Public Use
  Company Number: None

PATIENT
  Sex: Female
  Weight: 127 kg

DRUGS (3)
  1. FLUOROURACIL [Suspect]
     Dosage: 1145 MG
     Dates: end: 20091222
  2. CYCLOPHOSPHAMIDE [Suspect]
     Dosage: 1145 MG
     Dates: end: 20091222
  3. ELLENCE [Suspect]
     Dosage: 172 MG
     Dates: end: 20091222

REACTIONS (2)
  - FEBRILE NEUTROPENIA [None]
  - PULMONARY EMBOLISM [None]
